FAERS Safety Report 18354502 (Version 1)
Quarter: 2020Q4

REPORT INFORMATION
  Report Type: Report from Study
  Country: US (occurrence: US)
  Receive Date: 20201007
  Receipt Date: 20201007
  Transmission Date: 20210114
  Serious: Yes (Other)
  Sender: FDA-Public Use
  Company Number: US-GLAXOSMITHKLINE-US2019TSO204727

PATIENT
  Sex: Female
  Weight: 73.88 kg

DRUGS (4)
  1. NIRAPARIB [Suspect]
     Active Substance: NIRAPARIB
     Dosage: 200 MG, QD
  2. NIRAPARIB [Suspect]
     Active Substance: NIRAPARIB
     Dosage: 200 MG, QD
     Route: 048
     Dates: end: 20200929
  3. NIRAPARIB [Suspect]
     Active Substance: NIRAPARIB
     Dosage: 200 MG, QD, LATE MORNING AROUND 11:00
     Route: 048
  4. NIRAPARIB [Suspect]
     Active Substance: NIRAPARIB
     Indication: OVARIAN CANCER
     Dosage: 200 MG, QD
     Route: 048
     Dates: start: 20191104

REACTIONS (23)
  - Blood creatinine increased [Unknown]
  - Sleep disorder [Not Recovered/Not Resolved]
  - Constipation [Unknown]
  - Fatigue [Recovering/Resolving]
  - Dysuria [Unknown]
  - Off label use [Unknown]
  - Diarrhoea [Not Recovered/Not Resolved]
  - Nasopharyngitis [Unknown]
  - Recurrent cancer [Unknown]
  - Oral mucosal blistering [Unknown]
  - Pollakiuria [Unknown]
  - Sinus disorder [Unknown]
  - Condition aggravated [Not Recovered/Not Resolved]
  - Depression [Unknown]
  - Oedema [Unknown]
  - Drug ineffective [Unknown]
  - Hot flush [Unknown]
  - Nausea [Recovering/Resolving]
  - Asthenia [Unknown]
  - Renal disorder [Unknown]
  - Mood altered [Unknown]
  - Micturition urgency [Unknown]
  - Peripheral swelling [Unknown]
